FAERS Safety Report 15858681 (Version 2)
Quarter: 2019Q2

REPORT INFORMATION
  Report Type: Spontaneous
  Country: US (occurrence: US)
  Receive Date: 20190123
  Receipt Date: 20190529
  Transmission Date: 20190711
  Serious: No
  Sender: FDA-Public Use
  Company Number: US-PFIZER INC-2019027774

PATIENT
  Age: 65 Year
  Sex: Female
  Weight: 102.6 kg

DRUGS (2)
  1. ALAVERT ALLERGY [Suspect]
     Active Substance: LORATADINE
     Dosage: 10 MG, 2X/DAY
     Dates: start: 20190101, end: 20190114
  2. ALAVERT ALLERGY [Suspect]
     Active Substance: LORATADINE
     Indication: ALLERGIC SINUSITIS
     Dosage: 1 TABLET, 1X/DAY
     Route: 048
     Dates: start: 201901

REACTIONS (2)
  - Intentional overdose [Not Recovered/Not Resolved]
  - Therapeutic product effect incomplete [Recovered/Resolved]

NARRATIVE: CASE EVENT DATE: 201901
